FAERS Safety Report 13372521 (Version 1)
Quarter: 2017Q1

REPORT INFORMATION
  Report Type: Spontaneous
  Country: US (occurrence: US)
  Receive Date: 20170327
  Receipt Date: 20170327
  Transmission Date: 20170429
  Serious: No
  Sender: FDA-Public Use
  Company Number: US-TEVA-745474USA

PATIENT

DRUGS (1)
  1. PROVIGIL [Suspect]
     Active Substance: MODAFINIL
     Route: 065

REACTIONS (1)
  - Drug ineffective [Unknown]
